FAERS Safety Report 4631099-5 (Version None)
Quarter: 2005Q2

REPORT INFORMATION
  Report Type: 
  Country: None (occurrence: None)
  Receive Date: 20050406
  Receipt Date: 20050326
  Transmission Date: 20051028
  Serious: Yes (Other)
  Sender: FDA-Public Use
  Company Number: 2005050401

PATIENT
  Sex: Male
  Weight: 72.5755 kg

DRUGS (7)
  1. NORVASC [Suspect]
     Indication: HYPERTENSION
     Dosage: 10 MG, ORAL
     Route: 048
     Dates: start: 20030101
  2. VICODIN [Concomitant]
  3. ALPRAZOLAM [Concomitant]
  4. COMTREX (CHLORPHENAMINE MALEATE, DEXTROMETHORPHAN HYDROBROMIDE, PARACE [Concomitant]
  5. MULTIVITAMINS (ASCORBIC ACID, ERGOCALCIFEROL, FOLIC ACID, NICOTINAMIDE [Concomitant]
  6. TEMAZEPAM [Concomitant]
  7. EPROSARTAN (EPROSARTAN) [Concomitant]

REACTIONS (8)
  - BALANCE DISORDER [None]
  - BLOOD PRESSURE INCREASED [None]
  - DIZZINESS [None]
  - FALL [None]
  - HEPATITIS C [None]
  - LOSS OF CONSCIOUSNESS [None]
  - PROSTATIC DISORDER [None]
  - WEIGHT DECREASED [None]
